FAERS Safety Report 11959337 (Version 4)
Quarter: 2016Q1

REPORT INFORMATION
  Report Type: Spontaneous
  Country: US (occurrence: US)
  Receive Date: 20160126
  Receipt Date: 20160211
  Transmission Date: 20160526
  Serious: No
  Sender: FDA-Public Use
  Company Number: US-BAYER-2016-010815

PATIENT
  Age: 38 Year
  Sex: Female

DRUGS (5)
  1. VICKS NYQUIL [Suspect]
     Active Substance: ACETAMINOPHEN\DEXTROMETHORPHAN HYDROBROMIDE\DOXYLAMINE SUCCINATE
     Indication: RESPIRATORY TRACT INFECTION
  2. TYLENOL [Suspect]
     Active Substance: ACETAMINOPHEN
  3. ALEVE [Suspect]
     Active Substance: NAPROXEN SODIUM
     Indication: BACK INJURY
     Dosage: 1 DF, PRN
  4. DRISTAN COLD MULTISYMPTOM [Suspect]
     Active Substance: ACETAMINOPHEN\CHLORPHENIRAMINE MALEATE\PHENYLEPHRINE HYDROCHLORIDE
     Indication: NASOPHARYNGITIS
  5. DRISTAN COLD MULTISYMPTOM [Suspect]
     Active Substance: ACETAMINOPHEN\CHLORPHENIRAMINE MALEATE\PHENYLEPHRINE HYDROCHLORIDE
     Indication: SINUSITIS

REACTIONS (14)
  - Diarrhoea [Recovered/Resolved]
  - Head discomfort [Recovered/Resolved]
  - Rotator cuff syndrome [None]
  - Palpitations [Recovered/Resolved]
  - Stress [Recovered/Resolved]
  - Product use issue [Recovered/Resolved]
  - Arthritis [None]
  - Presyncope [Recovered/Resolved]
  - Gastric disorder [Not Recovered/Not Resolved]
  - Dizziness exertional [Recovered/Resolved]
  - Paranoia [Recovered/Resolved]
  - Product use issue [Recovered/Resolved]
  - Disturbance in attention [Recovered/Resolved]
  - Hepatic steatosis [None]

NARRATIVE: CASE EVENT DATE: 1990
